FAERS Safety Report 4545278-9 (Version None)
Quarter: 2005Q1

REPORT INFORMATION
  Report Type: 
  Country: None (occurrence: None)
  Receive Date: 20050105
  Receipt Date: 20041229
  Transmission Date: 20050727
  Serious: Yes (Other)
  Sender: FDA-Public Use
  Company Number: US-JNJFOC-20050100097

PATIENT
  Sex: Female
  Weight: 44.45 kg

DRUGS (9)
  1. ORTHO TRI-CYCLEN LO [Suspect]
     Indication: CONTRACEPTION
     Route: 049
  2. PRENATAL VITAMINS [Concomitant]
  3. PRENATAL VITAMINS [Concomitant]
  4. PRENATAL VITAMINS [Concomitant]
  5. PRENATAL VITAMINS [Concomitant]
  6. PRENATAL VITAMINS [Concomitant]
  7. PRENATAL VITAMINS [Concomitant]
  8. PRENATAL VITAMINS [Concomitant]
  9. PRENATAL VITAMINS [Concomitant]

REACTIONS (3)
  - DRUG EXPOSURE DURING PREGNANCY [None]
  - PLACENTAL DISORDER [None]
  - PREGNANCY ON ORAL CONTRACEPTIVE [None]
